FAERS Safety Report 5966831-1 (Version None)
Quarter: 2008Q4

REPORT INFORMATION
  Report Type: 
  Country: None (occurrence: None)
  Receive Date: 20081125
  Receipt Date: 20081124
  Transmission Date: 20090506
  Serious: Yes (Other)
  Sender: FDA-Public Use
  Company Number: BR-ROXANE LABORATORIES, INC.-2008-RO-00279RO

PATIENT
  Age: 50 Year
  Sex: Male
  Weight: 76 kg

DRUGS (6)
  1. MIDAZOLAM HCL [Suspect]
     Indication: SEDATION
     Route: 042
  2. LIDOCAINE [Suspect]
     Indication: LOCAL ANAESTHESIA
  3. FENTANYL [Suspect]
     Indication: SEDATION
     Route: 042
  4. OXYGEN [Suspect]
     Route: 045
  5. EPINEPHRINE [Suspect]
     Indication: LOCAL ANAESTHESIA
  6. ROPIVACAINE [Suspect]
     Indication: LOCAL ANAESTHESIA

REACTIONS (3)
  - DYSPNOEA [None]
  - PHRENIC NERVE PARALYSIS [None]
  - TACHYPNOEA [None]
